FAERS Safety Report 22135135 (Version 4)
Quarter: 2023Q4

REPORT INFORMATION
  Report Type: Spontaneous
  Country: CA (occurrence: CA)
  Receive Date: 20230324
  Receipt Date: 20231201
  Transmission Date: 20240109
  Serious: Yes (Other)
  Sender: FDA-Public Use
  Company Number: CA-002147023-NVSC2023CA059675

PATIENT
  Age: 69 Year
  Sex: Female

DRUGS (54)
  1. OMALIZUMAB [Suspect]
     Active Substance: OMALIZUMAB
     Indication: Product used for unknown indication
     Route: 065
  2. OMALIZUMAB [Suspect]
     Active Substance: OMALIZUMAB
     Route: 065
  3. OMALIZUMAB [Suspect]
     Active Substance: OMALIZUMAB
     Route: 065
  4. OMALIZUMAB [Suspect]
     Active Substance: OMALIZUMAB
     Route: 065
  5. OMALIZUMAB [Suspect]
     Active Substance: OMALIZUMAB
     Route: 065
  6. AZITHROMYCIN [Suspect]
     Active Substance: AZITHROMYCIN
     Indication: Product used for unknown indication
     Route: 065
  7. AZITHROMYCIN [Suspect]
     Active Substance: AZITHROMYCIN
     Route: 065
  8. CALCIUM CARBONATE [Suspect]
     Active Substance: CALCIUM CARBONATE
     Indication: Product used for unknown indication
     Route: 065
  9. PANTOPRAZOLE SODIUM [Suspect]
     Active Substance: PANTOPRAZOLE SODIUM
     Indication: Product used for unknown indication
     Route: 065
  10. PANTOPRAZOLE [Suspect]
     Active Substance: PANTOPRAZOLE
     Indication: Product used for unknown indication
     Dosage: 40 MG, QD
     Route: 065
  11. HYDROXYZINE [Suspect]
     Active Substance: HYDROXYZINE HYDROCHLORIDE
     Indication: Product used for unknown indication
     Route: 065
  12. VENTOLIN [Suspect]
     Active Substance: ALBUTEROL SULFATE
     Indication: Product used for unknown indication
     Route: 065
  13. VENTOLIN [Suspect]
     Active Substance: ALBUTEROL SULFATE
     Route: 065
  14. BENRALIZUMAB [Suspect]
     Active Substance: BENRALIZUMAB
     Indication: Asthma
     Route: 042
  15. BENRALIZUMAB [Suspect]
     Active Substance: BENRALIZUMAB
     Route: 042
  16. CHOLECALCIFEROL [Suspect]
     Active Substance: CHOLECALCIFEROL
     Indication: Product used for unknown indication
     Route: 065
  17. CALCIUM [Suspect]
     Active Substance: CALCIUM
     Indication: Product used for unknown indication
     Route: 065
  18. CELEBREX [Suspect]
     Active Substance: CELECOXIB
     Indication: Product used for unknown indication
     Route: 065
  19. ROFLUMILAST [Suspect]
     Active Substance: ROFLUMILAST
     Indication: Pseudomonas infection
     Route: 048
  20. ROFLUMILAST [Suspect]
     Active Substance: ROFLUMILAST
     Indication: Pseudomonas infection
     Route: 048
  21. ROFLUMILAST [Suspect]
     Active Substance: ROFLUMILAST
     Route: 048
  22. ROFLUMILAST [Suspect]
     Active Substance: ROFLUMILAST
     Route: 048
  23. IMODIUM [Suspect]
     Active Substance: LOPERAMIDE HYDROCHLORIDE
     Indication: Product used for unknown indication
     Route: 065
  24. PREDNISONE [Suspect]
     Active Substance: PREDNISONE
     Indication: Product used for unknown indication
     Route: 065
  25. ALBUTEROL [Suspect]
     Active Substance: ALBUTEROL
     Indication: Product used for unknown indication
     Route: 065
  26. ALBUTEROL [Suspect]
     Active Substance: ALBUTEROL
     Route: 065
  27. SINGULAIR [Suspect]
     Active Substance: MONTELUKAST SODIUM
     Indication: Product used for unknown indication
     Route: 065
  28. SINGULAIR [Suspect]
     Active Substance: MONTELUKAST SODIUM
     Route: 065
  29. SINGULAIR [Suspect]
     Active Substance: MONTELUKAST SODIUM
     Route: 065
  30. SPIRIVA [Suspect]
     Active Substance: TIOTROPIUM BROMIDE MONOHYDRATE
     Indication: Product used for unknown indication
     Dosage: UNK
     Route: 065
  31. SPIRIVA [Suspect]
     Active Substance: TIOTROPIUM BROMIDE MONOHYDRATE
     Route: 065
  32. SPIRIVA [Suspect]
     Active Substance: TIOTROPIUM BROMIDE MONOHYDRATE
     Route: 065
  33. SPIRIVA [Suspect]
     Active Substance: TIOTROPIUM BROMIDE MONOHYDRATE
     Route: 065
  34. SPIRIVA [Suspect]
     Active Substance: TIOTROPIUM BROMIDE MONOHYDRATE
     Route: 065
  35. VITAMIN D3 [Suspect]
     Active Substance: CHOLECALCIFEROL
     Indication: Product used for unknown indication
     Route: 065
  36. ZOPICLONE [Suspect]
     Active Substance: ZOPICLONE
     Indication: Product used for unknown indication
     Route: 065
  37. ZOPICLONE [Suspect]
     Active Substance: ZOPICLONE
     Route: 065
  38. ZOPICLONE [Suspect]
     Active Substance: ZOPICLONE
     Route: 065
  39. ZOPICLONE [Suspect]
     Active Substance: ZOPICLONE
     Route: 065
  40. ALBUTEROL SULFATE [Suspect]
     Active Substance: ALBUTEROL SULFATE
     Indication: Product used for unknown indication
     Route: 065
  41. ALBUTEROL SULFATE [Suspect]
     Active Substance: ALBUTEROL SULFATE
     Route: 065
  42. ALVESCO [Suspect]
     Active Substance: CICLESONIDE
     Indication: Product used for unknown indication
     Route: 065
  43. ALVESCO [Suspect]
     Active Substance: CICLESONIDE
     Dosage: (METERED DOSE)
     Route: 065
  44. ALVESCO [Suspect]
     Active Substance: CICLESONIDE
     Route: 065
  45. ALVESCO [Suspect]
     Active Substance: CICLESONIDE
     Route: 065
  46. ALVESCO [Suspect]
     Active Substance: CICLESONIDE
     Route: 065
  47. ALVESCO [Suspect]
     Active Substance: CICLESONIDE
     Route: 065
  48. ALVESCO [Suspect]
     Active Substance: CICLESONIDE
     Route: 065
  49. ALVESCO [Suspect]
     Active Substance: CICLESONIDE
     Route: 065
  50. ALVESCO [Suspect]
     Active Substance: CICLESONIDE
     Route: 065
  51. ALVESCO [Suspect]
     Active Substance: CICLESONIDE
     Route: 065
  52. ALVESCO [Suspect]
     Active Substance: CICLESONIDE
     Dosage: 300 UG BID PRESSURISED INHALATION, SOLUTION
     Route: 065
  53. ALVESCO [Suspect]
     Active Substance: CICLESONIDE
     Dosage: 200UG BID
     Route: 065
  54. HYDROXYZINE HYDROCHLORIDE [Suspect]
     Active Substance: HYDROXYZINE HYDROCHLORIDE
     Indication: Product used for unknown indication
     Dosage: UNK
     Route: 065

REACTIONS (22)
  - Bacterial disease carrier [Unknown]
  - Bronchial secretion retention [Unknown]
  - Bronchial wall thickening [Unknown]
  - Condition aggravated [Unknown]
  - Fall [Unknown]
  - Full blood count abnormal [Unknown]
  - Ill-defined disorder [Unknown]
  - Intervertebral disc protrusion [Unknown]
  - Malaise [Unknown]
  - Obstructive airways disorder [Unknown]
  - Rales [Unknown]
  - Spinal cord compression [Unknown]
  - Sputum discoloured [Unknown]
  - Upper limb fracture [Unknown]
  - Wrist fracture [Unknown]
  - Wheezing [Unknown]
  - Illness [Unknown]
  - Dyspnoea [Unknown]
  - Cough [Unknown]
  - Asthma [Unknown]
  - Therapeutic product effect incomplete [Unknown]
  - Drug ineffective [Unknown]
